FAERS Safety Report 8587480-5 (Version None)
Quarter: 2012Q3

REPORT INFORMATION
  Report Type: 
  Country: None (occurrence: None)
  Receive Date: 20120810
  Receipt Date: 20120806
  Transmission Date: 20120928
  Serious: Yes (Hospitalization)
  Sender: FDA-Public Use
  Company Number: US-VERTEX PHARMACEUTICALS INC.-AE-2012-009156

PATIENT
  Sex: Male

DRUGS (3)
  1. INCIVEK [Suspect]
     Indication: HEPATITIS C
     Route: 048
     Dates: start: 20120412, end: 20120515
  2. RIBAVIRIN [Concomitant]
     Indication: HEPATITIS C
     Dates: start: 20120412, end: 20120515
  3. PEGASYS [Concomitant]
     Indication: HEPATITIS C
     Dates: start: 20120412, end: 20120515

REACTIONS (2)
  - STEVENS-JOHNSON SYNDROME [None]
  - ANAEMIA [None]
